FAERS Safety Report 4668659-1 (Version None)
Quarter: 2005Q2

REPORT INFORMATION
  Report Type: 
  Country: None (occurrence: None)
  Receive Date: 20050523
  Receipt Date: 20041001
  Transmission Date: 20051028
  Serious: No
  Sender: FDA-Public Use
  Company Number: US-GLAXOSMITHKLINE-A0528140A

PATIENT
  Age: 50 Year
  Sex: Female

DRUGS (6)
  1. FLOLAN [Suspect]
     Dosage: 14NGKM CONTINUOUS
     Route: 042
     Dates: start: 20040927
  2. LIPITOR [Concomitant]
  3. SYNTHROID [Concomitant]
  4. PROTONIX [Concomitant]
  5. COUMADIN [Concomitant]
  6. COLACE [Concomitant]

REACTIONS (2)
  - NAUSEA [None]
  - OVERDOSE [None]
